FAERS Safety Report 8792645 (Version 1)
Quarter: 2012Q4

REPORT INFORMATION
  Report Type: 
  Country: US (occurrence: US)
  Receive Date: 20120918
  Receipt Date: 20120918
  Transmission Date: 20130627
  Serious: Yes (Death)
  Sender: FDA-Public Use
  Company Number: US-GLAXOSMITHKLINE-A0785170A

PATIENT
  Age: 49 Year
  Sex: Male
  Weight: 140 kg

DRUGS (10)
  1. AVANDIA [Suspect]
     Indication: DIABETES MELLITUS
     Route: 048
  2. PRINIVIL [Concomitant]
  3. INSULIN [Concomitant]
  4. DARVOCET [Concomitant]
  5. ARTHROTEC [Concomitant]
  6. ATENOLOL [Concomitant]
  7. RANITIDINE [Concomitant]
  8. TRICOR [Concomitant]
  9. LORTAB [Concomitant]
  10. VALIUM [Concomitant]

REACTIONS (2)
  - Myocardial infarction [Fatal]
  - Cardiac arrest [Unknown]
